FAERS Safety Report 7543675-0 (Version None)
Quarter: 2011Q2

REPORT INFORMATION
  Report Type: 
  Country: None (occurrence: None)
  Receive Date: 20110613
  Receipt Date: 20030408
  Transmission Date: 20111010
  Serious: Yes (Death, Hospitalization, Other)
  Sender: FDA-Public Use
  Company Number: PHFR2002GB03335

PATIENT
  Sex: Male

DRUGS (7)
  1. RABEPRAZOLE SODIUM [Concomitant]
     Dosage: 20 MG/DAY
     Route: 048
     Dates: end: 20030411
  2. TEMAZEPAM [Concomitant]
     Dosage: 10 MG/DAY
     Route: 048
     Dates: end: 20030411
  3. ASPIRIN [Concomitant]
     Dosage: 75 MG/DAY
     Route: 048
     Dates: end: 20030411
  4. CLOZAPINE [Suspect]
     Indication: SCHIZOPHRENIA
     Dosage: 425 MG/DAY
     Route: 048
     Dates: start: 19900920, end: 20030411
  5. VALPROATE SODIUM [Concomitant]
     Dosage: 200 MG/DAY
     Route: 048
     Dates: end: 20030411
  6. VENLAFAXINE [Concomitant]
     Dosage: 300 MG/DAY
     Route: 048
     Dates: end: 20030411
  7. PRIADEL [Concomitant]
     Dosage: 800 MG/DAY
     Route: 048
     Dates: end: 20030411

REACTIONS (2)
  - METASTASES TO CENTRAL NERVOUS SYSTEM [None]
  - BRONCHIAL CARCINOMA [None]
